FAERS Safety Report 13075812 (Version 1)
Quarter: 2016Q4

REPORT INFORMATION
  Report Type: Spontaneous
  Country: US (occurrence: US)
  Receive Date: 20161229
  Receipt Date: 20161229
  Transmission Date: 20170207
  Serious: Yes (Life-Threatening, Hospitalization, Disabling, Other)
  Sender: FDA-Public Use
  Company Number: None

PATIENT
  Age: 45 Year
  Sex: Female
  Weight: 54 kg

DRUGS (4)
  1. ISOTRETINOIN [Suspect]
     Active Substance: ISOTRETINOIN
  2. BLOOD THINNERS [Concomitant]
     Active Substance: UNSPECIFIED INGREDIENT
  3. AMNESTEEM [Suspect]
     Active Substance: ISOTRETINOIN
  4. ACCUTANE [Suspect]
     Active Substance: ISOTRETINOIN
     Indication: ROSACEA
     Route: 048

REACTIONS (6)
  - Back pain [None]
  - Thrombosis [None]
  - Fall [None]
  - Factor V Leiden carrier [None]
  - Pain in extremity [None]
  - Tachycardia [None]

NARRATIVE: CASE EVENT DATE: 20160615
